FAERS Safety Report 5186586-0 (Version None)
Quarter: 2006Q4

REPORT INFORMATION
  Report Type: 
  Country: None (occurrence: None)
  Receive Date: 20061220
  Receipt Date: 20060222
  Transmission Date: 20070319
  Serious: No
  Sender: FDA-Public Use
  Company Number: US-AMGEN-US169958

PATIENT
  Sex: Female
  Weight: 69 kg

DRUGS (2)
  1. ENBREL [Suspect]
     Indication: PSORIASIS
     Route: 065
     Dates: start: 20050913, end: 20060101
  2. SORIATANE [Concomitant]
     Route: 065
     Dates: start: 20050101, end: 20050901

REACTIONS (4)
  - ALOPECIA [None]
  - CONDITION AGGRAVATED [None]
  - PSORIASIS [None]
  - SKIN EXFOLIATION [None]
